FAERS Safety Report 10022901 (Version 3)
Quarter: 2014Q2

REPORT INFORMATION
  Report Type: Report from Study
  Country: US (occurrence: US)
  Receive Date: 20140319
  Receipt Date: 20140416
  Transmission Date: 20141212
  Serious: Yes (Death, Hospitalization)
  Sender: FDA-Public Use
  Company Number: US-ACTELION-A-NJ2014-94962

PATIENT
  Age: 47 Year
  Sex: Female

DRUGS (11)
  1. TRACLEER [Suspect]
     Indication: PULMONARY ARTERIAL HYPERTENSION
     Dosage: 125 MG, BID
     Route: 048
     Dates: end: 20140225
  2. TRACLEER [Suspect]
     Dosage: UNK
     Route: 048
  3. SYNTHROID [Concomitant]
  4. COUMADIN [Concomitant]
  5. SPIRONOLACTONE [Concomitant]
  6. LASIX [Concomitant]
  7. DIGOXIN [Concomitant]
  8. ADCIRCA [Concomitant]
  9. POTASSIUM [Concomitant]
  10. IRON [Concomitant]
  11. FLEXERIL [Concomitant]

REACTIONS (2)
  - Right ventricular failure [Fatal]
  - Fluid overload [Fatal]
